FAERS Safety Report 25178001 (Version 1)
Quarter: 2025Q2

REPORT INFORMATION
  Report Type: Spontaneous
  Country: US (occurrence: US)
  Receive Date: 20250409
  Receipt Date: 20250409
  Transmission Date: 20250716
  Serious: No
  Sender: KVK-TECH
  Company Number: US-KVK-TECH, INC-20240600080

PATIENT
  Age: 55 Year
  Sex: Female
  Weight: 129.71 kg

DRUGS (1)
  1. PHENTERMINE HYDROCHLORIDE [Suspect]
     Active Substance: PHENTERMINE HYDROCHLORIDE
     Indication: Weight decreased
     Route: 065
     Dates: start: 20240526

REACTIONS (3)
  - Somnolence [Unknown]
  - Throat irritation [Unknown]
  - Asthenia [Unknown]

NARRATIVE: CASE EVENT DATE: 20240526
